FAERS Safety Report 7797368-5 (Version None)
Quarter: 2011Q4

REPORT INFORMATION
  Report Type: 
  Country: None (occurrence: None)
  Receive Date: 20111003
  Receipt Date: 20110922
  Transmission Date: 20120403
  Serious: Yes (Other)
  Sender: FDA-Public Use
  Company Number: 2011-01099

PATIENT
  Age: 68 Year
  Sex: Female
  Weight: 100 kg

DRUGS (10)
  1. BUPRENORPHRINE (BUTRANS) [Concomitant]
  2. DOXAZOSIN MESYLATE [Concomitant]
  3. OLMESARTAN MEDOXOMIL [Concomitant]
  4. VENLAFAXINE [Concomitant]
  5. CEFTRIAXONE [Suspect]
     Indication: CELLULITIS
     Dosage: (2 MG), INTRAVENOUS
     Route: 042
     Dates: start: 20110909, end: 20110909
  6. FLOXACILLIN SODIUM [Concomitant]
  7. FOLIC ACID [Concomitant]
  8. LANSOPRAZOLE [Concomitant]
  9. METHOTREXATE [Concomitant]
  10. PENICILLIN V [Concomitant]

REACTIONS (2)
  - CHEST PAIN [None]
  - PAIN IN JAW [None]
